FAERS Safety Report 13310272 (Version 6)
Quarter: 2022Q3

REPORT INFORMATION
  Report Type: Spontaneous
  Country: US (occurrence: US)
  Receive Date: 20170309
  Receipt Date: 20220927
  Transmission Date: 20221027
  Serious: Yes (Other)
  Sender: FDA-Public Use
  Company Number: US-JNJFOC-20170201409

PATIENT
  Age: 16 Year
  Sex: Male

DRUGS (8)
  1. RISPERDAL [Suspect]
     Active Substance: RISPERIDONE
     Indication: Attention deficit hyperactivity disorder
     Dosage: 1 MG AND 2 MG
     Route: 048
     Dates: start: 201211
  2. RISPERDAL [Suspect]
     Active Substance: RISPERIDONE
     Indication: Autism spectrum disorder
     Dosage: 1 MG AND 2 MG
     Route: 048
     Dates: start: 201310, end: 201311
  3. RISPERDAL [Suspect]
     Active Substance: RISPERIDONE
     Indication: Psychotic disorder
     Dosage: VARYING DOSES OF 1 MG, 1.5 MG AND 2 MG
     Route: 048
     Dates: start: 201311, end: 201312
  4. RISPERDAL [Suspect]
     Active Substance: RISPERIDONE
     Indication: Anger
     Route: 048
     Dates: start: 201401, end: 201402
  5. RISPERDAL [Suspect]
     Active Substance: RISPERIDONE
     Indication: Agitation
     Route: 048
     Dates: start: 201311, end: 201403
  6. RISPERDAL [Suspect]
     Active Substance: RISPERIDONE
     Indication: Hostility
  7. RISPERDAL [Suspect]
     Active Substance: RISPERIDONE
     Indication: Drug therapy
  8. RISPERIDONE [Suspect]
     Active Substance: RISPERIDONE
     Indication: Product used for unknown indication
     Route: 048
     Dates: start: 2013

REACTIONS (4)
  - Gynaecomastia [Unknown]
  - Abnormal weight gain [Unknown]
  - Therapy cessation [Unknown]
  - Emotional distress [Unknown]

NARRATIVE: CASE EVENT DATE: 20130301
